FAERS Safety Report 5060858-2 (Version None)
Quarter: 2006Q2

REPORT INFORMATION
  Report Type: 
  Country: None (occurrence: None)
  Receive Date: 20060630
  Receipt Date: 20050524
  Transmission Date: 20061013
  Serious: Yes (Death)
  Sender: FDA-Public Use
  Company Number: 405802

PATIENT
  Age: 29 Year
  Sex: Male

DRUGS (1)
  1. CELLCEPT [Suspect]
     Indication: BONE MARROW TRANSPLANT
     Dosage: ORAL
     Route: 048
     Dates: start: 20020515

REACTIONS (1)
  - DEATH [None]
